FAERS Safety Report 25072845 (Version 1)
Quarter: 2025Q1

REPORT INFORMATION
  Report Type: Spontaneous
  Country: JP (occurrence: JP)
  Receive Date: 20250313
  Receipt Date: 20250313
  Transmission Date: 20250409
  Serious: Yes (Other)
  Sender: ROCHE
  Company Number: JP-ROCHE-10000229681

PATIENT
  Age: 47 Year
  Sex: Female

DRUGS (6)
  1. TRASTUZUMAB [Suspect]
     Active Substance: TRASTUZUMAB
     Indication: Breast cancer
     Route: 065
  2. PERTUZUMAB [Suspect]
     Active Substance: PERTUZUMAB
     Indication: Breast cancer
     Route: 065
  3. PACLITAXEL [Suspect]
     Active Substance: PACLITAXEL
     Indication: Breast cancer
     Route: 065
  4. LAPATINIB [Concomitant]
     Active Substance: LAPATINIB
  5. TRASTUZUMAB DERUXTECAN [Concomitant]
     Active Substance: TRASTUZUMAB DERUXTECAN
     Indication: Metastases to central nervous system
  6. CAPECITABINE [Concomitant]
     Active Substance: CAPECITABINE

REACTIONS (2)
  - Metastases to central nervous system [Unknown]
  - Metastasis [Unknown]

NARRATIVE: CASE EVENT DATE: 20200401
